FAERS Safety Report 9281751 (Version 2)
Quarter: 2013Q3

REPORT INFORMATION
  Report Type: Spontaneous
  Country: US (occurrence: US)
  Receive Date: 20130510
  Receipt Date: 20130813
  Transmission Date: 20140515
  Serious: Yes (Hospitalization, Other)
  Sender: FDA-Public Use
  Company Number: US-B.I. PHARMACEUTICALS,INC./RIDGEFIELD-2013-BI-13016BP

PATIENT
  Age: 64 Year
  Sex: Male
  Weight: 73.48 kg

DRUGS (10)
  1. PRADAXA [Suspect]
     Indication: ANTICOAGULANT THERAPY
     Dosage: 300 MG
     Dates: start: 20110210, end: 20110219
  2. METFORMIN [Concomitant]
     Dosage: 1000 MG
     Route: 048
  3. LIPITOR [Concomitant]
     Dosage: 10 MG
     Route: 048
  4. GLUCOTROL [Concomitant]
     Dosage: 5 MG
     Route: 048
  5. ASPIRIN [Concomitant]
     Dosage: 81 MG
     Route: 048
  6. LASIX [Concomitant]
     Dosage: 40 MG
     Route: 048
  7. K-DUR [Concomitant]
     Dosage: 20 MEQ
     Route: 048
  8. AMIODARONE [Concomitant]
     Dosage: 200 MG
     Route: 048
  9. LOPRESSOR [Concomitant]
     Dosage: 50 MG
     Route: 048
  10. COLACE [Concomitant]
     Dosage: 200 MG
     Route: 048

REACTIONS (3)
  - Gastrointestinal haemorrhage [Unknown]
  - Gastric ulcer [Unknown]
  - Large intestine polyp [Unknown]
